FAERS Safety Report 7436060-3 (Version None)
Quarter: 2011Q2

REPORT INFORMATION
  Report Type: 
  Country: None (occurrence: None)
  Receive Date: 20110425
  Receipt Date: 20110412
  Transmission Date: 20111010
  Serious: Yes (Hospitalization)
  Sender: FDA-Public Use
  Company Number: AT-BAYER-2011-031767

PATIENT
  Age: 44 Year
  Sex: Male
  Weight: 83 kg

DRUGS (6)
  1. SINTROM [Concomitant]
  2. PANTOLOC [Concomitant]
     Dosage: 40 MG, QD
  3. SARIDON [Suspect]
     Indication: HEADACHE
     Dosage: 1 DF, ONCE
  4. SYMBICORT [Concomitant]
     Dosage: 2 DF, BID
  5. SPIRIVA [Concomitant]
     Dosage: 1 DF, QD
  6. TRACLEER [Concomitant]
     Dosage: 125 BLU/L, BID

REACTIONS (5)
  - HYPERSENSITIVITY [None]
  - URTICARIA [None]
  - HYPOAESTHESIA ORAL [None]
  - PRURITUS [None]
  - DYSPNOEA [None]
